FAERS Safety Report 5982152-5 (Version None)
Quarter: 2008Q4

REPORT INFORMATION
  Report Type: 
  Country: None (occurrence: None)
  Receive Date: 20081203
  Receipt Date: 20081106
  Transmission Date: 20090506
  Serious: No
  Sender: FDA-Public Use
  Company Number: ADE# 08-192

PATIENT
  Age: 82 Year
  Sex: Female
  Weight: 117 kg

DRUGS (10)
  1. TRAMADOL HYDROCHLORIDE [Suspect]
     Indication: PAIN
     Dosage: SEE IMAGE
  2. TRAMADOL HYDROCHLORIDE [Suspect]
     Indication: SPINAL COLUMN STENOSIS
     Dosage: SEE IMAGE
  3. CYMBALTA [Concomitant]
  4. ASPIRIN [Concomitant]
  5. PROCARDIA [Concomitant]
  6. LIPITOR [Concomitant]
  7. CALCIUM [Concomitant]
  8. CENTRUM [Concomitant]
  9. CELEBREX 50MG [Concomitant]
  10. LOPRESSOR [Concomitant]

REACTIONS (2)
  - HALLUCINATION, AUDITORY [None]
  - INADEQUATE ANALGESIA [None]
